FAERS Safety Report 6327537-2 (Version None)
Quarter: 2009Q3

REPORT INFORMATION
  Report Type: 
  Country: None (occurrence: None)
  Receive Date: 20090825
  Receipt Date: 20090819
  Transmission Date: 20100115
  Serious: Yes (Other)
  Sender: FDA-Public Use
  Company Number: PHHY2009GB35345

PATIENT
  Age: 49 Year
  Sex: Female
  Weight: 58.6 kg

DRUGS (2)
  1. CYCLOSPORINE [Suspect]
     Indication: PSORIASIS
     Dosage: UNK
     Route: 048
  2. BYETTA [Suspect]
     Indication: DIABETES MELLITUS
     Dosage: 10 UG
     Route: 058
     Dates: start: 20090122

REACTIONS (1)
  - GASTRIC ULCER [None]
